FAERS Safety Report 9986215 (Version 2)
Quarter: 2014Q1

REPORT INFORMATION
  Report Type: Report from Study
  Country: US (occurrence: US)
  Receive Date: 20140307
  Receipt Date: 20140307
  Transmission Date: 20141002
  Serious: No
  Sender: FDA-Public Use
  Company Number: US-ABBVIE-13P-163-1037320-00

PATIENT
  Sex: Female

DRUGS (12)
  1. HUMIRA [Suspect]
     Indication: CROHN^S DISEASE
     Dates: start: 20091019
  2. PENTASA [Concomitant]
     Indication: PRODUCT USED FOR UNKNOWN INDICATION
     Dosage: 500MG, 4 CAPSULES BID
  3. LIPITOR [Concomitant]
     Indication: HYPERCHOLESTEROLAEMIA
  4. NEXIUM [Concomitant]
     Indication: GASTROOESOPHAGEAL REFLUX DISEASE
     Dosage: 40MG 1 BID
  5. DYAZIDE [Concomitant]
     Indication: PRODUCT USED FOR UNKNOWN INDICATION
     Dosage: 37.5/25/100MG 1DAILY X3DAYS THEN NONE X1DAY THEN ONE DAILYX3 DAYS
  6. EFFEXOR [Concomitant]
     Indication: DEPRESSION
     Dosage: BID
  7. BUSPAR [Concomitant]
     Indication: ANXIETY
  8. BUSPAR [Concomitant]
     Indication: DEPRESSION
  9. TRAZODONE [Concomitant]
     Indication: SLEEP DISORDER
     Dosage: 1 AT NIGHT
  10. TRAZODONE [Concomitant]
     Indication: FIBROMYALGIA
  11. ESTROGEN [Concomitant]
     Indication: PRODUCT USED FOR UNKNOWN INDICATION
  12. UNKNOWN FACE CREAM [Concomitant]
     Indication: PRODUCT USED FOR UNKNOWN INDICATION

REACTIONS (2)
  - Urinary tract infection [Not Recovered/Not Resolved]
  - Abdominal pain upper [Not Recovered/Not Resolved]
